FAERS Safety Report 5537886-3 (Version None)
Quarter: 2007Q4

REPORT INFORMATION
  Report Type: 
  Country: None (occurrence: None)
  Receive Date: 20071207
  Receipt Date: 20071129
  Transmission Date: 20080405
  Serious: Yes (Life-Threatening, Hospitalization, Other)
  Sender: FDA-Public Use
  Company Number: GB-PFIZER INC-2007087888

PATIENT
  Sex: Male
  Weight: 7 kg

DRUGS (3)
  1. SILDENAFIL (PAH) [Suspect]
     Indication: LUNG DISORDER
     Route: 048
  2. ANTIBIOTICS [Concomitant]
  3. ALL OTHER THERAPEUTIC PRODUCTS [Concomitant]

REACTIONS (5)
  - ABDOMINAL ADHESIONS [None]
  - ABDOMINAL DISTENSION [None]
  - GASTROINTESTINAL STOMA COMPLICATION [None]
  - INTESTINAL ISCHAEMIA [None]
  - INTESTINAL OBSTRUCTION [None]
